FAERS Safety Report 7774430-4 (Version None)
Quarter: 2011Q3

REPORT INFORMATION
  Report Type: 
  Country: None (occurrence: None)
  Receive Date: 20110923
  Receipt Date: 20110912
  Transmission Date: 20111222
  Serious: Yes (Hospitalization)
  Sender: FDA-Public Use
  Company Number: US-JNJFOC-20110905349

PATIENT
  Sex: Female
  Weight: 90.72 kg

DRUGS (4)
  1. STELARA [Suspect]
     Route: 058
     Dates: start: 20091101
  2. STELARA [Suspect]
     Indication: PSORIASIS
     Route: 058
     Dates: start: 20110808
  3. STELARA [Suspect]
     Route: 058
  4. STELARA [Suspect]
     Route: 058

REACTIONS (4)
  - KNEE OPERATION [None]
  - EYE OEDEMA [None]
  - PSORIASIS [None]
  - THERAPEUTIC RESPONSE DECREASED [None]
